FAERS Safety Report 8291203 (Version 2)
Quarter: 2013Q1

REPORT INFORMATION
  Report Type: Spontaneous
  Country: US (occurrence: US)
  Receive Date: 20111214
  Receipt Date: 20130218
  Transmission Date: 20140127
  Serious: Yes (Other)
  Sender: FDA-Public Use
  Company Number: US-ROCHE-1021222

PATIENT
  Sex: Male
  Weight: 90.8 kg

DRUGS (2)
  1. ACCUTANE [Suspect]
     Indication: ACNE
     Route: 048
     Dates: start: 200201, end: 20020831
  2. ACCUTANE [Suspect]
     Route: 048
     Dates: start: 200204, end: 200209

REACTIONS (5)
  - Colitis ulcerative [Unknown]
  - Inflammatory bowel disease [Unknown]
  - Injury [Unknown]
  - Irritable bowel syndrome [Unknown]
  - Blood triglycerides increased [Unknown]
